FAERS Safety Report 23182038 (Version 2)
Quarter: 2024Q1

REPORT INFORMATION
  Report Type: Other
  Country: IN (occurrence: None)
  Receive Date: 20231114
  Receipt Date: 20240226
  Transmission Date: 20240410
  Serious: Yes (Death, Other)
  Sender: FDA-Public Use
  Company Number: IN-ROCHE-3454855

PATIENT

DRUGS (1)
  1. RITUXIMAB [Suspect]
     Active Substance: RITUXIMAB
     Indication: Diffuse large B-cell lymphoma
     Route: 065

REACTIONS (13)
  - Cardiac disorder [Fatal]
  - Myocardial ischaemia [Fatal]
  - Multiple organ dysfunction syndrome [Fatal]
  - Febrile neutropenia [Unknown]
  - Gastrointestinal disorder [Unknown]
  - Constipation [Unknown]
  - Ill-defined disorder [Unknown]
  - Interstitial lung disease [Unknown]
  - Mediastinal disorder [Unknown]
  - Respiratory disorder [Unknown]
  - Ill-defined disorder [Unknown]
  - Vomiting [Unknown]
  - Abdominal pain [Unknown]
